FAERS Safety Report 10478769 (Version 2)
Quarter: 2014Q3

REPORT INFORMATION
  Report Type: Spontaneous
  Country: US (occurrence: US)
  Receive Date: 20140926
  Receipt Date: 20140926
  Transmission Date: 20150326
  Serious: Yes (Other)
  Sender: FDA-Public Use
  Company Number: PHHY2014US101155

PATIENT
  Sex: Male

DRUGS (5)
  1. BACLOFEN. [Suspect]
     Active Substance: BACLOFEN
     Dosage: UNK UKN, UNK
  2. TRAZODONE [Suspect]
     Active Substance: TRAZODONE HYDROCHLORIDE
     Dosage: UNK UKN, UNK
  3. LIORESAL [Suspect]
     Active Substance: BACLOFEN
     Indication: MUSCLE SPASTICITY
     Dosage: 522.5 UG, PER DAY
     Route: 037
     Dates: end: 20140613
  4. RANITIDINE [Suspect]
     Active Substance: RANITIDINE\RANITIDINE HYDROCHLORIDE
     Dosage: UNK UKN, UNK
  5. VALIUM [Suspect]
     Active Substance: DIAZEPAM
     Dosage: UNK UKN, UNK

REACTIONS (5)
  - Hypertonia [Recovered/Resolved]
  - Implant site extravasation [Recovered/Resolved]
  - Implant site swelling [Recovered/Resolved]
  - Muscle spasticity [Recovered/Resolved]
  - Pain [Recovered/Resolved]
